FAERS Safety Report 9458279 (Version 2)
Quarter: 2013Q3

REPORT INFORMATION
  Report Type: Spontaneous
  Country: BR (occurrence: BR)
  Receive Date: 20130814
  Receipt Date: 20130816
  Transmission Date: 20140515
  Serious: Yes (Death, Other)
  Sender: FDA-Public Use
  Company Number: BR-PFIZER INC-2013234278

PATIENT
  Age: 89 Year
  Sex: Female

DRUGS (1)
  1. LYRICA [Suspect]
     Dosage: 1 ^UNSPECIFIED^ DAY (AS REPORTED)
     Route: 048

REACTIONS (1)
  - Pneumonia [Fatal]
